FAERS Safety Report 8355382-5 (Version None)
Quarter: 2012Q2

REPORT INFORMATION
  Report Type: 
  Country: None (occurrence: None)
  Receive Date: 20120511
  Receipt Date: 20120501
  Transmission Date: 20120825
  Serious: Yes (Death)
  Sender: FDA-Public Use
  Company Number: GB-ROCHE-1060565

PATIENT
  Sex: Female

DRUGS (1)
  1. LUCENTIS [Suspect]
     Indication: PRODUCT USED FOR UNKNOWN INDICATION
     Route: 050
     Dates: start: 20101201, end: 20110929

REACTIONS (4)
  - SEPSIS [None]
  - RENAL FAILURE [None]
  - CARDIAC FAILURE [None]
  - MYOCARDIAL ISCHAEMIA [None]
